FAERS Safety Report 10381304 (Version 1)
Quarter: 2014Q3

REPORT INFORMATION
  Report Type: Spontaneous
  Country: TW (occurrence: TW)
  Receive Date: 20140813
  Receipt Date: 20140813
  Transmission Date: 20150326
  Serious: Yes (Other)
  Sender: FDA-Public Use
  Company Number: TW-SA-2014SA106688

PATIENT
  Sex: Female

DRUGS (1)
  1. PETHIDINE HYDROCHLORIDE [Suspect]
     Active Substance: MEPERIDINE
     Indication: PRODUCT USED FOR UNKNOWN INDICATION
     Dosage: RAPID INFUSION
     Route: 065

REACTIONS (5)
  - Eye movement disorder [Recovered/Resolved]
  - Nervous system disorder [Recovered/Resolved]
  - Cerebellar syndrome [Recovered/Resolved]
  - IIIrd nerve disorder [Recovered/Resolved]
  - Saccadic eye movement [Recovered/Resolved]
